FAERS Safety Report 7945166-1 (Version None)
Quarter: 2011Q4

REPORT INFORMATION
  Report Type: 
  Country: None (occurrence: None)
  Receive Date: 20111129
  Receipt Date: 20111121
  Transmission Date: 20120403
  Serious: Yes (Hospitalization)
  Sender: FDA-Public Use
  Company Number: CA-UCBSA-046274

PATIENT
  Age: 79 Year
  Sex: Female
  Weight: 72.6 kg

DRUGS (2)
  1. CIMZIA [Suspect]
     Route: 058
     Dates: start: 20110524, end: 20110621
  2. CIMZIA [Suspect]
     Indication: RHEUMATOID ARTHRITIS
     Route: 058
     Dates: start: 20110705

REACTIONS (1)
  - VERTIGO [None]
